FAERS Safety Report 10246915 (Version 1)
Quarter: 2014Q2

REPORT INFORMATION
  Report Type: Spontaneous
  Country: US (occurrence: US)
  Receive Date: 20140619
  Receipt Date: 20140619
  Transmission Date: 20141212
  Serious: No
  Sender: FDA-Public Use
  Company Number: US-GILEAD-2014-0105556

PATIENT
  Age: 71 Year
  Sex: Female

DRUGS (4)
  1. LETAIRIS [Suspect]
     Indication: PRODUCT USED FOR UNKNOWN INDICATION
     Dosage: 10 MG, QD
     Route: 065
     Dates: start: 20131119
  2. ADCIRCA [Concomitant]
  3. WARFARIN [Concomitant]
  4. TYVASO [Concomitant]

REACTIONS (1)
  - Malaise [Unknown]
